FAERS Safety Report 21522700 (Version 3)
Quarter: 2024Q2

REPORT INFORMATION
  Report Type: Spontaneous
  Country: FR (occurrence: FR)
  Receive Date: 20221029
  Receipt Date: 20240404
  Transmission Date: 20240715
  Serious: Yes (Other)
  Sender: FDA-Public Use
  Company Number: FR-BIOGARAN-B22001661

PATIENT
  Age: 29 Year
  Sex: Female

DRUGS (12)
  1. DULOXETINE [Suspect]
     Active Substance: DULOXETINE
     Indication: Anxiolytic therapy
     Dosage: UNK (SUFFICIENT DOSES OVER SEVERAL MONTHS)
     Route: 065
  2. DULOXETINE [Suspect]
     Active Substance: DULOXETINE
     Indication: Trigeminal neuropathy
  3. PREGABALIN [Suspect]
     Active Substance: PREGABALIN
     Indication: Neuralgia
     Dosage: 150 MILLIGRAM, ONCE A DAY
     Route: 065
  4. VENLAFAXINE [Suspect]
     Active Substance: VENLAFAXINE HYDROCHLORIDE
     Indication: Anxiolytic therapy
     Dosage: UNK (SUFFICIENT DOSES OVER SEVERAL MONTHS)
     Route: 065
  5. VENLAFAXINE [Suspect]
     Active Substance: VENLAFAXINE HYDROCHLORIDE
     Indication: Trigeminal neuropathy
  6. AMITRIPTYLINE [Suspect]
     Active Substance: AMITRIPTYLINE
     Indication: Neuralgia
     Dosage: UNK (SUFFICIENT DOSES OVER SEVERAL MONTHS)
     Route: 065
  7. CLONAZEPAM [Suspect]
     Active Substance: CLONAZEPAM
     Indication: Neuralgia
     Dosage: 2.5 MILLIGRAM/MILLILITRE  (6 DROPS THREE TIMES DAILY)
     Route: 065
  8. CARBAMAZEPINE [Suspect]
     Active Substance: CARBAMAZEPINE
     Indication: Neuralgia
     Dosage: UNK (SUFFICIENT DOSES OVER SEVERAL MONTHS)
     Route: 065
  9. ROPIVACAINE [Suspect]
     Active Substance: ROPIVACAINE
     Indication: Nerve block
     Dosage: 7.5 MILLIGRAM PER MILLILITRE
     Route: 065
  10. BOTOX [Suspect]
     Active Substance: ONABOTULINUMTOXINA
     Indication: Neuralgia
     Dosage: 25 INTERNATIONAL UNIT (50 IU IN 1 ML SALINEA SECOND INJECTION WAS PERFORMED USING THE SAME DOSE (25
     Route: 023
  11. BOTOX [Concomitant]
     Active Substance: ONABOTULINUMTOXINA
     Indication: Neuralgia
     Dosage: 25 INTERNATIONAL UNIT (50 IU IN 1 ML SALINEA SECOND INJECTION WAS PERFORMED USING THE SAME DOSE (25
  12. BOTOX [Concomitant]
     Active Substance: ONABOTULINUMTOXINA
     Indication: Analgesic therapy

REACTIONS (7)
  - Amnesia [Unknown]
  - Weight increased [Unknown]
  - Fatigue [Unknown]
  - Impaired quality of life [Unknown]
  - Disturbance in attention [Unknown]
  - Therapeutic product effect incomplete [Unknown]
  - Maternal exposure during pregnancy [Unknown]
